FAERS Safety Report 25264054 (Version 2)
Quarter: 2025Q4

REPORT INFORMATION
  Report Type: Report from Study
  Country: US (occurrence: US)
  Receive Date: 20250502
  Receipt Date: 20251201
  Transmission Date: 20260118
  Serious: Yes (Other)
  Sender: TAKEDA
  Company Number: US-TAKEDA-2024TUS096718

PATIENT
  Age: 76 Year
  Sex: Male

DRUGS (3)
  1. MARIBAVIR [Suspect]
     Active Substance: MARIBAVIR
     Indication: Cytomegalovirus infection
     Dosage: UNK
  2. MARIBAVIR [Suspect]
     Active Substance: MARIBAVIR
     Dosage: 400 MILLIGRAM, BID
     Dates: start: 20250423
  3. MARIBAVIR [Suspect]
     Active Substance: MARIBAVIR
     Dosage: UNK

REACTIONS (2)
  - Cytomegalovirus infection reactivation [Unknown]
  - Circumstance or information capable of leading to medication error [Unknown]
